FAERS Safety Report 5736446-9 (Version None)
Quarter: 2008Q2

REPORT INFORMATION
  Report Type: 
  Country: None (occurrence: None)
  Receive Date: 20080513
  Receipt Date: 20080512
  Transmission Date: 20081010
  Serious: Yes (Other)
  Sender: FDA-Public Use
  Company Number: B0519809A

PATIENT
  Age: 79 Year
  Sex: Male
  Weight: 65 kg

DRUGS (10)
  1. VENTOLIN [Suspect]
     Indication: ASTHMA
     Route: 055
     Dates: start: 20031117
  2. LANSOPRAZOLE [Suspect]
     Dosage: 60MG PER DAY
     Dates: start: 20061228
  3. TAMSULOSIN HCL [Suspect]
     Dosage: 400MCG PER DAY
     Dates: start: 20061120
  4. ATORVASTATIN [Suspect]
     Indication: BLOOD CHOLESTEROL INCREASED
     Dosage: 20MG PER DAY
     Dates: start: 20070221
  5. VALSARTAN [Suspect]
     Indication: HYPERTENSION
     Dosage: 40MG PER DAY
     Dates: start: 20060403
  6. FERROUS SULFATE TAB [Suspect]
     Dosage: 200MG PER DAY
     Dates: start: 20040224
  7. EPOETIN BETA [Suspect]
     Dates: start: 20060114
  8. HYDROXOCOBALAMIN [Suspect]
     Dates: start: 20070221
  9. ACETAMINOPHEN [Suspect]
     Dates: start: 20010501
  10. ASPIRIN [Suspect]
     Indication: PROPHYLAXIS
     Dosage: 75MG PER DAY
     Dates: start: 19950306

REACTIONS (1)
  - IDIOPATHIC PULMONARY FIBROSIS [None]
